FAERS Safety Report 7870152-X (Version None)
Quarter: 2011Q4

REPORT INFORMATION
  Report Type: 
  Country: None (occurrence: None)
  Receive Date: 20111027
  Receipt Date: 20111020
  Transmission Date: 20120403
  Serious: Yes (Other)
  Sender: FDA-Public Use
  Company Number: PD 150

PATIENT
  Age: 39 Year
  Sex: Female

DRUGS (1)
  1. CETIRIZINE [Suspect]
     Indication: CONJUNCTIVITIS
     Dosage: 10 MG/DAY, ORAL/-2 MONTH
     Route: 048

REACTIONS (5)
  - URTICARIA [None]
  - JAUNDICE [None]
  - DEFICIENCY OF BILE SECRETION [None]
  - ARTHRALGIA [None]
  - PRURITUS [None]
